FAERS Safety Report 12860529 (Version 1)
Quarter: 2016Q4

REPORT INFORMATION
  Report Type: Spontaneous
  Country: GB (occurrence: GB)
  Receive Date: 20161019
  Receipt Date: 20161019
  Transmission Date: 20170207
  Serious: Yes (Other)
  Sender: FDA-Public Use
  Company Number: GB-PFIZER INC-2016481468

PATIENT
  Age: 35 Year
  Sex: Male
  Weight: 144 kg

DRUGS (12)
  1. ASPIRIN /00002701/ [Concomitant]
     Active Substance: ASPIRIN
     Dosage: 1 DF, UNK
     Dates: start: 20160708
  2. NICOTINELL [Concomitant]
     Active Substance: NICOTINE
     Dosage: 96
     Dates: start: 20160909, end: 20160909
  3. OMEPRAZOLE. [Concomitant]
     Active Substance: OMEPRAZOLE
     Dosage: 1 DF, UNK
     Dates: start: 20160708
  4. MEBEVERINE HYDROCHLORIDE [Concomitant]
     Active Substance: MEBEVERINE HYDROCHLORIDE
     Dosage: 1 DF, UNK
     Dates: start: 20160708
  5. PARACETAMOL [Concomitant]
     Active Substance: ACETAMINOPHEN
     Dosage: 2 DF, UNK
     Dates: start: 20160904, end: 20160904
  6. ZOPICLONE [Concomitant]
     Active Substance: ZOPICLONE
     Dosage: 1 DF, 1X/DAY AT NIGHT
     Dates: start: 20160818
  7. AMITRIPTYLINE HYDROCHLORIDE. [Concomitant]
     Active Substance: AMITRIPTYLINE HYDROCHLORIDE
     Dosage: 1 DF, UNK
     Dates: start: 20160902
  8. ENGERIX-B [Concomitant]
     Active Substance: HEPATITIS B VIRUS SUBTYPE ADW2 HBSAG SURFACE PROTEIN ANTIGEN
     Dosage: 1 DF, UNK
     Dates: start: 20160928, end: 20160928
  9. PREGABALIN. [Concomitant]
     Active Substance: PREGABALIN
     Dosage: 1 DF, UNK
     Dates: start: 20160729, end: 20160805
  10. IBUPROFEN. [Suspect]
     Active Substance: IBUPROFEN
     Dates: start: 20160916
  11. GLYCERYL TRINITRATE [Concomitant]
     Active Substance: NITROGLYCERIN
     Dosage: UNK
     Dates: start: 20160928
  12. NIQUITIN /01033301/ [Concomitant]
     Dosage: 14 PATCH
     Route: 062
     Dates: start: 20160928, end: 20160928

REACTIONS (2)
  - Anaphylactic reaction [Unknown]
  - Rubber sensitivity [Unknown]

NARRATIVE: CASE EVENT DATE: 20161004
